FAERS Safety Report 7787315-4 (Version None)
Quarter: 2011Q3

REPORT INFORMATION
  Report Type: 
  Country: None (occurrence: None)
  Receive Date: 20110929
  Receipt Date: 20110920
  Transmission Date: 20111222
  Serious: Yes (Disabling, Other)
  Sender: FDA-Public Use
  Company Number: BR-ELI_LILLY_AND_COMPANY-BR201109002782

PATIENT
  Sex: Male
  Weight: 90 kg

DRUGS (3)
  1. CIALIS [Suspect]
     Indication: ERECTILE DYSFUNCTION
     Dosage: UNK UNK, 2/M
     Dates: start: 20080101
  2. GINSENG                            /00480901/ [Concomitant]
     Dosage: UNK, UNKNOWN
  3. GINKO BILOBA [Concomitant]
     Dosage: UNK, UNKNOWN
     Route: 065

REACTIONS (5)
  - RETINAL DISORDER [None]
  - CONJUNCTIVITIS [None]
  - WRONG TECHNIQUE IN DRUG USAGE PROCESS [None]
  - VISUAL ACUITY REDUCED [None]
  - GLAUCOMA [None]
